FAERS Safety Report 12719178 (Version 1)
Quarter: 2016Q3

REPORT INFORMATION
  Report Type: Spontaneous
  Country: US (occurrence: US)
  Receive Date: 20160907
  Receipt Date: 20160907
  Transmission Date: 20161109
  Serious: No
  Sender: FDA-Public Use
  Company Number: US-JNJFOC-20160704515

PATIENT
  Age: 54 Year
  Sex: Female
  Weight: 81.65 kg

DRUGS (2)
  1. NORCO [Concomitant]
     Active Substance: ACETAMINOPHEN\HYDROCODONE BITARTRATE
     Indication: PAIN
     Dosage: DOSE: 10/325MG
     Route: 065
     Dates: start: 201604
  2. DURAGESIC [Suspect]
     Active Substance: FENTANYL
     Indication: ARTHRITIS
     Dosage: 25 MCG/ HR AND 12.5 MCG/ HR PATCH USED AT THE SAME TIME
     Route: 062
     Dates: start: 201605

REACTIONS (2)
  - Pain [Not Recovered/Not Resolved]
  - Product quality issue [Not Recovered/Not Resolved]

NARRATIVE: CASE EVENT DATE: 201605
